FAERS Safety Report 5557411-0 (Version None)
Quarter: 2007Q4

REPORT INFORMATION
  Report Type: 
  Country: None (occurrence: None)
  Receive Date: 20071214
  Receipt Date: 20071203
  Transmission Date: 20080405
  Serious: No
  Sender: FDA-Public Use
  Company Number: FR-SANOFI-SYNTHELABO-A02200703070

PATIENT
  Age: 59 Year
  Sex: Male

DRUGS (2)
  1. PLAVIX [Suspect]
     Indication: CORONARY ARTERIAL STENT INSERTION
     Route: 048
     Dates: start: 20040101
  2. NEBILOX [Suspect]
     Indication: DRUG USE FOR UNKNOWN INDICATION
     Dosage: UNK
     Route: 048
     Dates: start: 20070101, end: 20070101

REACTIONS (2)
  - ANGIOEDEMA [None]
  - THERAPEUTIC RESPONSE UNEXPECTED [None]
